FAERS Safety Report 14242337 (Version 1)
Quarter: 2017Q4

REPORT INFORMATION
  Report Type: Spontaneous
  Country: US (occurrence: US)
  Receive Date: 20171201
  Receipt Date: 20171201
  Transmission Date: 20180321
  Serious: No
  Sender: FDA-Public Use
  Company Number: US-PFIZER INC-2017508619

PATIENT
  Age: 54 Year
  Sex: Female

DRUGS (4)
  1. DESVENLAFAXINE. [Suspect]
     Active Substance: DESVENLAFAXINE
     Indication: PSYCHOTIC DISORDER
  2. PRISTIQ EXTENDED-RELEASE [Suspect]
     Active Substance: DESVENLAFAXINE SUCCINATE
     Indication: ANXIETY
     Dosage: UNK
     Dates: start: 20171107, end: 20171110
  3. PRISTIQ EXTENDED-RELEASE [Suspect]
     Active Substance: DESVENLAFAXINE SUCCINATE
     Indication: PSYCHOTIC DISORDER
  4. DESVENLAFAXINE. [Suspect]
     Active Substance: DESVENLAFAXINE
     Indication: ANXIETY
     Dosage: 50 MG, 1X/DAY
     Route: 048
     Dates: start: 20171107, end: 20171111

REACTIONS (5)
  - Product use in unapproved indication [Unknown]
  - Tinnitus [Not Recovered/Not Resolved]
  - Ill-defined disorder [Unknown]
  - Insomnia [Unknown]
  - Panic attack [Unknown]

NARRATIVE: CASE EVENT DATE: 201711
